FAERS Safety Report 8469635-3 (Version None)
Quarter: 2012Q2

REPORT INFORMATION
  Report Type: 
  Country: None (occurrence: None)
  Receive Date: 20120626
  Receipt Date: 20120529
  Transmission Date: 20120825
  Serious: No
  Sender: FDA-Public Use
  Company Number: US-TEVA-340422USA

PATIENT
  Age: 36 Year
  Sex: Male
  Weight: 90.8 kg

DRUGS (7)
  1. METFORMIN HCL [Concomitant]
     Route: 048
  2. FEXOFENADINE [Concomitant]
     Route: 048
  3. ESCITALOPRAM OXALATE [Concomitant]
     Route: 048
  4. LISINOPRIL [Concomitant]
  5. ALPRAZOLAM [Concomitant]
  6. QNASL [Suspect]
     Indication: RHINITIS ALLERGIC
     Dates: start: 20120511, end: 20120524
  7. QNASL [Suspect]
     Indication: RHINITIS SEASONAL

REACTIONS (1)
  - HEADACHE [None]
